FAERS Safety Report 10153831 (Version 3)
Quarter: 2014Q2

REPORT INFORMATION
  Report Type: Report from Study
  Country: FR (occurrence: FR)
  Receive Date: 20140506
  Receipt Date: 20140606
  Transmission Date: 20141212
  Serious: Yes (Hospitalization)
  Sender: FDA-Public Use
  Company Number: FR-ROCHE-1393178

PATIENT
  Age: 46 Year
  Sex: Male
  Weight: 82 kg

DRUGS (9)
  1. RITUXIMAB [Suspect]
     Indication: ANTI-NEUTROPHIL CYTOPLASMIC ANTIBODY POSITIVE VASCULITIS
     Dosage: CYCLE 1 DAY 1
     Route: 042
     Dates: start: 20130708, end: 20130708
  2. RITUXIMAB [Suspect]
     Dosage: CYCLE 1 DAY 15
     Route: 042
     Dates: start: 20130722, end: 20130722
  3. PREDNISONE [Suspect]
     Indication: ANTI-NEUTROPHIL CYTOPLASMIC ANTIBODY POSITIVE VASCULITIS
     Route: 048
     Dates: start: 20130618, end: 20130715
  4. PREDNISONE [Suspect]
     Route: 048
     Dates: start: 20130716, end: 20130723
  5. PREDNISONE [Suspect]
     Route: 048
     Dates: start: 20130724
  6. BACTRIM FORTE [Concomitant]
     Indication: GRANULOMATOSIS WITH POLYANGIITIS
     Route: 048
     Dates: start: 20130201, end: 20131028
  7. ZELITREX [Concomitant]
     Indication: GRANULOMATOSIS WITH POLYANGIITIS
     Route: 048
     Dates: start: 20130201, end: 20131028
  8. UVEDOSE [Concomitant]
     Indication: VITAMIN D DEFICIENCY
     Route: 048
     Dates: start: 20130207, end: 20131028
  9. SPECIAFOLDINE [Concomitant]
     Indication: GRANULOMATOSIS WITH POLYANGIITIS
     Route: 048
     Dates: start: 20130201

REACTIONS (2)
  - Lung disorder [Recovered/Resolved]
  - Pericarditis [Recovered/Resolved]
